FAERS Safety Report 4838108-9 (Version None)
Quarter: 2005Q4

REPORT INFORMATION
  Report Type: 
  Country: None (occurrence: None)
  Receive Date: 20051121
  Receipt Date: 20051109
  Transmission Date: 20060501
  Serious: Yes (Other)
  Sender: FDA-Public Use
  Company Number: THYM-10752

PATIENT
  Age: 36 Year
  Sex: Male

DRUGS (4)
  1. THYMOGLOBULIN [Suspect]
     Indication: IMMUNOSUPPRESSION
     Dates: start: 20000901, end: 20000901
  2. TACROLIMUS [Suspect]
     Indication: IMMUNOSUPPRESSION
     Dates: start: 20000901
  3. CELLCEPT [Suspect]
     Indication: IMMUNOSUPPRESSION
     Dates: start: 20000901
  4. PREDNISONE [Suspect]
     Indication: IMMUNOSUPPRESSION
     Dates: start: 20000901

REACTIONS (10)
  - COMPLEMENT FACTOR DECREASED [None]
  - COMPLICATIONS OF TRANSPLANTED KIDNEY [None]
  - DISEASE PROGRESSION [None]
  - GLOMERULONEPHRITIS [None]
  - HYPERTENSION [None]
  - MICROANGIOPATHIC HAEMOLYTIC ANAEMIA [None]
  - RENAL FAILURE CHRONIC [None]
  - THROMBOCYTOPENIA [None]
  - THROMBOTIC MICROANGIOPATHY [None]
  - THROMBOTIC THROMBOCYTOPENIC PURPURA [None]
